FAERS Safety Report 20505535 (Version 2)
Quarter: 2022Q1

REPORT INFORMATION
  Report Type: Spontaneous
  Country: FR (occurrence: FR)
  Receive Date: 20220223
  Receipt Date: 20220303
  Transmission Date: 20220424
  Serious: Yes (Life-Threatening, Other)
  Sender: FDA-Public Use
  Company Number: None

PATIENT
  Age: 68 Year
  Sex: Female
  Weight: 70 kg

DRUGS (5)
  1. HEPARIN SODIUM [Interacting]
     Active Substance: HEPARIN SODIUM
     Indication: Myocardial infarction
     Route: 042
     Dates: start: 20220113
  2. ENOXAPARIN SODIUM [Interacting]
     Active Substance: ENOXAPARIN SODIUM
     Indication: Myocardial infarction
     Dosage: 35 IU, 1X
     Route: 042
     Dates: start: 20220113, end: 20220113
  3. ASPIRIN DL-LYSINE [Interacting]
     Active Substance: ASPIRIN DL-LYSINE
     Indication: Myocardial infarction
     Dosage: 250 MG, 1X
     Route: 042
     Dates: start: 20220113, end: 20220113
  4. TIROFIBAN HYDROCHLORIDE [Interacting]
     Active Substance: TIROFIBAN HYDROCHLORIDE
     Indication: Myocardial infarction
     Route: 042
     Dates: start: 20220114, end: 20220114
  5. TICAGRELOR [Interacting]
     Active Substance: TICAGRELOR
     Indication: Myocardial infarction
     Route: 048
     Dates: start: 20220114, end: 20220114

REACTIONS (3)
  - Septic shock [Recovered/Resolved]
  - Cardiogenic shock [Recovered/Resolved]
  - Shock haemorrhagic [Recovered/Resolved]

NARRATIVE: CASE EVENT DATE: 20220114
